FAERS Safety Report 4720567-3 (Version None)
Quarter: 2005Q3

REPORT INFORMATION
  Report Type: 
  Country: None (occurrence: None)
  Receive Date: 20050719
  Receipt Date: 20041201
  Transmission Date: 20060218
  Serious: Yes (Other)
  Sender: FDA-Public Use
  Company Number: 2004101408

PATIENT
  Age: 53 Year
  Sex: Female
  Weight: 86.1834 kg

DRUGS (3)
  1. CELEBREX [Suspect]
     Indication: PLANTAR FASCIITIS
     Dosage: (200 MG), ORAL
     Route: 048
     Dates: start: 20041110, end: 20041110
  2. ESOMEPRAZOLE [Concomitant]
  3. CORTISONE ACETATE TAB [Concomitant]

REACTIONS (2)
  - FACE OEDEMA [None]
  - PHARYNGEAL OEDEMA [None]
